FAERS Safety Report 7424001-4 (Version None)
Quarter: 2011Q2

REPORT INFORMATION
  Report Type: 
  Country: None (occurrence: None)
  Receive Date: 20110419
  Receipt Date: 20110406
  Transmission Date: 20111010
  Serious: Yes (Other)
  Sender: FDA-Public Use
  Company Number: CA-JNJFOC-20110403925

PATIENT
  Age: 36 Year
  Sex: Female
  Weight: 70 kg

DRUGS (2)
  1. REMICADE [Suspect]
     Indication: CROHN'S DISEASE
     Route: 042
  2. REMICADE [Suspect]
     Route: 042

REACTIONS (3)
  - LOSS OF CONSCIOUSNESS [None]
  - HAEMORRHAGE [None]
  - HEAD INJURY [None]
